FAERS Safety Report 5737774-3 (Version None)
Quarter: 2008Q2

REPORT INFORMATION
  Report Type: 
  Country: None (occurrence: None)
  Receive Date: 20080514
  Receipt Date: 20080508
  Transmission Date: 20081010
  Serious: Yes (Death)
  Sender: FDA-Public Use
  Company Number: JP-AVENTIS-200811056JP

PATIENT
  Age: 79 Year
  Sex: Male

DRUGS (48)
  1. TAXOTERE [Suspect]
     Route: 041
     Dates: start: 20060822, end: 20061031
  2. DECADRON [Concomitant]
     Indication: PREMEDICATION
     Route: 051
     Dates: start: 20060822, end: 20060822
  3. DECADRON [Concomitant]
     Route: 051
     Dates: start: 20060829, end: 20060829
  4. DECADRON [Concomitant]
     Route: 051
     Dates: start: 20060912, end: 20060912
  5. DECADRON [Concomitant]
     Route: 051
     Dates: start: 20060919, end: 20060919
  6. DECADRON [Concomitant]
     Route: 051
     Dates: start: 20061003, end: 20061003
  7. DECADRON [Concomitant]
     Route: 051
     Dates: start: 20061010, end: 20061010
  8. DECADRON [Concomitant]
     Route: 051
     Dates: start: 20061024, end: 20061024
  9. DECADRON [Concomitant]
     Route: 051
     Dates: start: 20061031, end: 20061031
  10. DECADRON [Concomitant]
     Route: 051
     Dates: start: 20061109, end: 20061109
  11. BIOFERMIN [Concomitant]
     Route: 048
     Dates: start: 20060905, end: 20060911
  12. BIOFERMIN [Concomitant]
     Route: 048
     Dates: start: 20061010, end: 20061120
  13. MAGNESIUM OXIDE [Concomitant]
     Dates: start: 20060825
  14. LOPEMIN [Concomitant]
     Dates: start: 20060905
  15. LEVOFLOXACIN [Concomitant]
     Dates: start: 20060822
  16. DICHLOD [Concomitant]
     Dates: start: 20060822
  17. FLUMETHOLON [Concomitant]
     Dates: start: 20060822
  18. ISOTONIC SODIUM CHLORIDE SOLUTION [Concomitant]
     Route: 051
     Dates: start: 20060822, end: 20060822
  19. ISOTONIC SODIUM CHLORIDE SOLUTION [Concomitant]
     Route: 051
     Dates: start: 20060829, end: 20060829
  20. ISOTONIC SODIUM CHLORIDE SOLUTION [Concomitant]
     Route: 051
     Dates: start: 20060912, end: 20060912
  21. ISOTONIC SODIUM CHLORIDE SOLUTION [Concomitant]
     Route: 051
     Dates: start: 20060919, end: 20060919
  22. ISOTONIC SODIUM CHLORIDE SOLUTION [Concomitant]
     Route: 051
     Dates: start: 20061003, end: 20061003
  23. ISOTONIC SODIUM CHLORIDE SOLUTION [Concomitant]
     Route: 051
     Dates: start: 20061010, end: 20061010
  24. ISOTONIC SODIUM CHLORIDE SOLUTION [Concomitant]
     Route: 051
     Dates: start: 20061024, end: 20061024
  25. ISOTONIC SODIUM CHLORIDE SOLUTION [Concomitant]
     Route: 051
     Dates: start: 20061031, end: 20061031
  26. ISOTONIC SODIUM CHLORIDE SOLUTION [Concomitant]
     Route: 051
     Dates: start: 20061109, end: 20061111
  27. ISOTONIC SODIUM CHLORIDE SOLUTION [Concomitant]
     Route: 051
     Dates: start: 20061118, end: 20061205
  28. ISOTONIC SODIUM CHLORIDE SOLUTION [Concomitant]
     Route: 051
     Dates: start: 20061201, end: 20061203
  29. ISOTONIC SODIUM CHLORIDE SOLUTION [Concomitant]
     Route: 051
     Dates: start: 20061201, end: 20061201
  30. ISOTONIC SODIUM CHLORIDE SOLUTION [Concomitant]
     Route: 051
     Dates: start: 20061205, end: 20061205
  31. GLUCOSE [Concomitant]
     Route: 051
     Dates: start: 20060822, end: 20060822
  32. GLUCOSE [Concomitant]
     Route: 051
     Dates: start: 20060829, end: 20060829
  33. GLUCOSE [Concomitant]
     Route: 051
     Dates: start: 20060912, end: 20060912
  34. GLUCOSE [Concomitant]
     Route: 051
     Dates: start: 20060919, end: 20060919
  35. GLUCOSE [Concomitant]
     Route: 051
     Dates: start: 20061003, end: 20061003
  36. GLUCOSE [Concomitant]
     Route: 051
     Dates: start: 20061010, end: 20061010
  37. GLUCOSE [Concomitant]
     Route: 051
     Dates: start: 20061024, end: 20061024
  38. GLUCOSE [Concomitant]
     Route: 051
     Dates: start: 20061031, end: 20061031
  39. GLUCOSE [Concomitant]
     Route: 051
     Dates: start: 20061130, end: 20061205
  40. HERBAL PREPARATION [Concomitant]
     Route: 048
     Dates: start: 20060919, end: 20061002
  41. HERBAL PREPARATION [Concomitant]
     Route: 048
     Dates: start: 20061024, end: 20061113
  42. DECADRON [Concomitant]
     Route: 048
     Dates: start: 20061001, end: 20061005
  43. DECADRON [Concomitant]
     Route: 048
     Dates: start: 20061006, end: 20061014
  44. DECADRON [Concomitant]
     Route: 048
     Dates: start: 20061024, end: 20061028
  45. FERROMIA                           /00023516/ [Concomitant]
     Route: 048
     Dates: start: 20061010, end: 20061113
  46. COMBINATIONS OF VITAMINS [Concomitant]
     Dosage: DOSE: 2 TABLETS
     Route: 048
     Dates: start: 20061010, end: 20061204
  47. LENDORMIN [Concomitant]
     Dates: start: 20061010
  48. TERSIGAN [Concomitant]
     Dates: start: 20061031

REACTIONS (1)
  - INTERSTITIAL LUNG DISEASE [None]
